FAERS Safety Report 13435312 (Version 1)
Quarter: 2017Q2

REPORT INFORMATION
  Report Type: Spontaneous
  Country: US (occurrence: US)
  Receive Date: 20170412
  Receipt Date: 20170412
  Transmission Date: 20170830
  Serious: No
  Sender: FDA-Public Use
  Company Number: US-SA-2016SA081034

PATIENT
  Age: 82 Year
  Sex: Male
  Weight: 210 kg

DRUGS (1)
  1. ALLEGRA ALLERGY [Suspect]
     Active Substance: FEXOFENADINE HYDROCHLORIDE
     Indication: RHINORRHOEA
     Dosage: STARTED 1-2 MONTHS AGO
     Route: 048
     Dates: start: 20160301, end: 20160418

REACTIONS (4)
  - Dysphonia [Unknown]
  - Therapeutic response decreased [Not Recovered/Not Resolved]
  - Rhinorrhoea [Not Recovered/Not Resolved]
  - Drug ineffective [Unknown]
